FAERS Safety Report 20647515 (Version 2)
Quarter: 2022Q4

REPORT INFORMATION
  Report Type: Report from Study
  Country: MX (occurrence: MX)
  Receive Date: 20220329
  Receipt Date: 20221219
  Transmission Date: 20230113
  Serious: Yes (Hospitalization)
  Sender: FDA-Public Use
  Company Number: MX-NOVARTISPH-NVSC2021MX048546

PATIENT
  Age: 63 Year
  Sex: Female
  Weight: 55 kg

DRUGS (3)
  1. TASIGNA [Suspect]
     Active Substance: NILOTINIB
     Indication: Chronic myeloid leukaemia
     Dosage: 400 MG, Q12H
     Route: 048
  2. TASIGNA [Suspect]
     Active Substance: NILOTINIB
     Dosage: UNK
     Route: 048
  3. TASIGNA [Suspect]
     Active Substance: NILOTINIB
     Dosage: 4 UNK, QD
     Route: 048

REACTIONS (18)
  - Angina pectoris [Unknown]
  - Chest pain [Unknown]
  - Nausea [Unknown]
  - Pain in extremity [Unknown]
  - Respiration abnormal [Unknown]
  - Mucosal disorder [Unknown]
  - Speech disorder [Unknown]
  - Feeling hot [Unknown]
  - COVID-19 [Recovered/Resolved with Sequelae]
  - Feeling abnormal [Unknown]
  - Anosmia [Unknown]
  - Ageusia [Unknown]
  - Cough [Not Recovered/Not Resolved]
  - Pulmonary pain [Recovering/Resolving]
  - Fatigue [Recovering/Resolving]
  - COVID-19 [Recovering/Resolving]
  - Influenza [Not Recovered/Not Resolved]
  - Catarrh [Not Recovered/Not Resolved]

NARRATIVE: CASE EVENT DATE: 20210220
